FAERS Safety Report 7203514-4 (Version None)
Quarter: 2010Q4

REPORT INFORMATION
  Report Type: 
  Country: None (occurrence: None)
  Receive Date: 20101230
  Receipt Date: 20101228
  Transmission Date: 20110411
  Serious: Yes (Hospitalization)
  Sender: FDA-Public Use
  Company Number: US-BRISTOL-MYERS SQUIBB COMPANY-15463169

PATIENT
  Age: 59 Year
  Sex: Female
  Weight: 82 kg

DRUGS (6)
  1. ABILIFY [Suspect]
     Indication: BIPOLAR DISORDER
     Dosage: LAST DOSE PILL:10MG ON 20DEC10 EXCEPT FOR 5 MG PILL
     Dates: start: 20101202
  2. KLONOPIN [Suspect]
  3. RISPERDAL [Suspect]
  4. LISINOPRIL [Concomitant]
     Dosage: STARTED A MONTH AGO
  5. OXYCODONE HCL [Concomitant]
  6. FLEXERIL [Concomitant]

REACTIONS (4)
  - FEELING ABNORMAL [None]
  - FEELING JITTERY [None]
  - MUSCLE SPASMS [None]
  - RASH [None]
